FAERS Safety Report 18097704 (Version 2)
Quarter: 2020Q3

REPORT INFORMATION
  Report Type: Spontaneous
  Country: US (occurrence: US)
  Receive Date: 20200731
  Receipt Date: 20200731
  Transmission Date: 20201103
  Serious: Yes (Other)
  Sender: FDA-Public Use
  Company Number: US-CELGENEUS-USA-20200706857

PATIENT
  Age: 47 Year
  Sex: Female

DRUGS (3)
  1. THALOMID [Suspect]
     Active Substance: THALIDOMIDE
     Indication: SYSTEMIC LUPUS ERYTHEMATOSUS
     Dosage: 100 MILLIGRAM (EVERY NIGHT)
     Route: 048
     Dates: start: 20200623
  2. THALOMID [Suspect]
     Active Substance: THALIDOMIDE
     Indication: OFF LABEL USE
  3. HYDROXYCHLOR [Concomitant]
     Active Substance: HYDROXYCHLOROQUINE
     Indication: PRODUCT USED FOR UNKNOWN INDICATION
     Route: 065

REACTIONS (8)
  - Irritability [Unknown]
  - Confusional state [Unknown]
  - Hypoaesthesia [Unknown]
  - Dyspnoea [Unknown]
  - Paraesthesia [Unknown]
  - Dehydration [Unknown]
  - Gastrointestinal disorder [Unknown]
  - Hemiparesis [Unknown]

NARRATIVE: CASE EVENT DATE: 202006
